FAERS Safety Report 12518348 (Version 6)
Quarter: 2017Q1

REPORT INFORMATION
  Report Type: Report from Study
  Country: JP (occurrence: JP)
  Receive Date: 20160630
  Receipt Date: 20170213
  Transmission Date: 20170428
  Serious: Yes (Hospitalization)
  Sender: FDA-Public Use
  Company Number: JP-CELGENEUS-JPN-2016064694

PATIENT
  Age: 62 Year
  Sex: Female
  Weight: 44 kg

DRUGS (55)
  1. LOXOPROFEN [Concomitant]
     Active Substance: LOXOPROFEN
     Indication: BACK PAIN
     Dosage: 60 MILLIGRAM
     Route: 048
     Dates: start: 2012, end: 20160617
  2. OSELTAMIVIR PHOSPHATE. [Concomitant]
     Active Substance: OSELTAMIVIR PHOSPHATE
     Indication: INFLUENZA
     Dosage: 150 MILLIGRAM
     Route: 048
     Dates: start: 20160128, end: 20160202
  3. ACETAMINOPHEN. [Concomitant]
     Active Substance: ACETAMINOPHEN
     Indication: PROCEDURAL PAIN
     Dosage: 1000 MILLIGRAM
     Route: 041
     Dates: start: 20160620, end: 20160621
  4. IOVERSOL [Concomitant]
     Active Substance: IOVERSOL
     Indication: SCAN WITH CONTRAST
     Dosage: 75 MILLILITER
     Route: 041
     Dates: start: 20160426, end: 20160426
  5. LIDOCAINE. [Concomitant]
     Active Substance: LIDOCAINE
     Indication: NECK MASS
     Dosage: 2 GRAM
     Route: 061
     Dates: start: 20160620, end: 20160620
  6. DESFLURANE. [Concomitant]
     Active Substance: DESFLURANE
     Indication: NECK MASS
  7. SALICYLAMIDE/ACETAMINOPHEN/ANHYDROUS CAFFEINE/PROMETHAZINE/METHYLENEDI [Concomitant]
     Indication: NASOPHARYNGITIS
     Dosage: 1 GRAM
     Route: 048
     Dates: start: 20160619, end: 20160625
  8. BIOFERMIN R [Concomitant]
     Active Substance: BACILLUS SUBTILIS\LACTOBACILLUS ACIDOPHILUS\STREPTOCOCCUS FAECAIS
     Indication: DIARRHOEA
     Dosage: 3 TABLET
     Route: 048
     Dates: start: 20160626, end: 20160702
  9. LOXOPROFEN [Concomitant]
     Active Substance: LOXOPROFEN
     Indication: BEHCET^S SYNDROME
     Dosage: 60 MILLIGRAM
     Route: 048
     Dates: start: 2010
  10. LIDOCAINE/ADRENALINE [Concomitant]
     Indication: NECK MASS
  11. CEFAZOLIN SODIUM. [Concomitant]
     Active Substance: CEFAZOLIN SODIUM
     Indication: INFECTION PROPHYLAXIS
     Route: 041
     Dates: start: 20160620, end: 20160625
  12. METOCLOPRAMIDE HYDROCHLORIDE. [Concomitant]
     Active Substance: METOCLOPRAMIDE HYDROCHLORIDE
     Indication: NAUSEA
     Dosage: 10 MILLIGRAM
     Route: 041
     Dates: start: 20160620, end: 20160625
  13. FENTANYL. [Concomitant]
     Active Substance: FENTANYL
     Indication: SURGERY
     Dosage: .2 MILLIGRAM
     Route: 041
     Dates: start: 20160620, end: 20160620
  14. FLURBIPROFEN. [Concomitant]
     Active Substance: FLURBIPROFEN
     Indication: BACK PAIN
     Dosage: 40 MILLIGRAM
     Route: 062
     Dates: start: 20160621, end: 20160625
  15. CC-10004 [Suspect]
     Active Substance: APREMILAST
     Indication: BEHCET^S SYNDROME
     Dosage: 60 MILLIGRAM
     Route: 048
     Dates: start: 20160128, end: 20160402
  16. ESOMEPRAZOLE MAGNESIUM HYDRATE [Concomitant]
     Indication: NASOPHARYNGITIS
     Dosage: 20 MILLIGRAM
     Route: 048
     Dates: start: 20151119, end: 20151120
  17. SENNOSIDE [Concomitant]
     Active Substance: SENNOSIDES
     Indication: NECK MASS
     Dosage: 24 MILLIGRAM
     Route: 048
     Dates: start: 20160508, end: 20160508
  18. LIDOCAINE/ADRENALINE [Concomitant]
     Indication: SURGERY
     Dosage: 10 MILLIGRAM
     Route: 061
     Dates: start: 20160620, end: 20160620
  19. POVIDONE-IODINE. [Concomitant]
     Active Substance: POVIDONE-IODINE
     Indication: SURGERY
     Route: 061
     Dates: start: 20160620, end: 20160620
  20. LANSOPRAZOLE. [Concomitant]
     Active Substance: LANSOPRAZOLE
     Indication: GASTRITIS PROPHYLAXIS
     Dosage: 15 MILLIGRAM
     Route: 048
     Dates: start: 20160621
  21. LIDOCAINE. [Concomitant]
     Active Substance: LIDOCAINE
     Indication: SURGERY
     Route: 061
     Dates: start: 20160620, end: 20160620
  22. LIDOCAINE. [Concomitant]
     Active Substance: LIDOCAINE
     Dosage: 1 APPLICATION
     Route: 061
     Dates: start: 20160620, end: 20160620
  23. DESFLURANE. [Concomitant]
     Active Substance: DESFLURANE
     Indication: SURGERY
     Route: 055
     Dates: start: 20160620, end: 20160620
  24. REMIFENTANIL HYDROCHLORIDE [Concomitant]
     Active Substance: REMIFENTANIL HYDROCHLORIDE
     Indication: SURGERY
     Dosage: 11.97 MILLILITER
     Route: 041
     Dates: start: 20160620, end: 20160620
  25. ROCURONIUM BROMIDE. [Concomitant]
     Active Substance: ROCURONIUM BROMIDE
     Indication: NECK MASS
  26. SUGAMMADEX SODIUM [Concomitant]
     Active Substance: SUGAMMADEX SODIUM
     Indication: NECK MASS
  27. EPHEDRINE. [Concomitant]
     Active Substance: EPHEDRINE
     Indication: SURGERY
     Dosage: 12 MILLIGRAM
     Route: 041
     Dates: start: 20160620, end: 20160620
  28. EPHEDRINE. [Concomitant]
     Active Substance: EPHEDRINE
     Indication: NECK MASS
  29. DEXTROMETHORPHAN [Concomitant]
     Active Substance: DEXTROMETHORPHAN
     Indication: NASOPHARYNGITIS
     Dosage: 60 MILLIGRAM
     Route: 048
     Dates: start: 20160624, end: 201607
  30. MAGMITT [Concomitant]
     Active Substance: MAGNESIUM OXIDE
     Indication: CONSTIPATION
     Dosage: .4 GRAM
     Route: 048
     Dates: start: 2010, end: 20151112
  31. CC-10004 [Suspect]
     Active Substance: APREMILAST
     Dosage: 60 MILLIGRAM
     Route: 048
     Dates: start: 20160513, end: 20160623
  32. ACETAMINOPHEN. [Concomitant]
     Active Substance: ACETAMINOPHEN
     Dosage: 1800 MILLIGRAM
     Route: 048
     Dates: start: 20160621, end: 20160625
  33. HEPARIN SODIUM. [Concomitant]
     Active Substance: HEPARIN SODIUM
     Indication: POSTOPERATIVE CARE
     Dosage: 100 IU (INTERNATIONAL UNIT)
     Route: 041
     Dates: start: 20160621, end: 20160625
  34. CEFDITOREN PIVOXIL. [Concomitant]
     Active Substance: CEFDITOREN PIVOXIL
     Indication: INFECTION PROPHYLAXIS
     Dosage: 300 MILLIGRAM
     Route: 048
     Dates: start: 20160625, end: 20160702
  35. MAGMITT [Concomitant]
     Active Substance: MAGNESIUM OXIDE
     Dosage: 500 MILLIGRAM
     Route: 048
     Dates: start: 20160707
  36. BROTIZOLAM [Concomitant]
     Active Substance: BROTIZOLAM
     Indication: INSOMNIA
     Dosage: .25 MILLIGRAM
     Route: 048
     Dates: start: 2003
  37. ESOMEPRAZOLE MAGNESIUM HYDRATE [Concomitant]
     Indication: GASTRITIS PROPHYLAXIS
     Dosage: 20 MILLIGRAM
     Route: 048
     Dates: start: 20151105
  38. ESOMEPRAZOLE MAGNESIUM HYDRATE [Concomitant]
     Dosage: 20 MILLIGRAM
     Route: 048
     Dates: start: 20151121, end: 20160617
  39. FEXOFENADINE HCL [Concomitant]
     Active Substance: FEXOFENADINE HYDROCHLORIDE
     Indication: SEASONAL ALLERGY
     Route: 048
     Dates: start: 20160222
  40. ADRENALINE [Concomitant]
     Active Substance: EPINEPHRINE
     Indication: SURGERY
     Dosage: 20 MILLILITER
     Route: 061
     Dates: start: 20160620, end: 20160620
  41. ADRENALINE [Concomitant]
     Active Substance: EPINEPHRINE
     Indication: NECK MASS
  42. REMIFENTANIL HYDROCHLORIDE [Concomitant]
     Active Substance: REMIFENTANIL HYDROCHLORIDE
     Indication: NECK MASS
  43. ROCURONIUM BROMIDE. [Concomitant]
     Active Substance: ROCURONIUM BROMIDE
     Indication: SURGERY
     Dosage: 70 MILLIGRAM
     Route: 041
     Dates: start: 20160620, end: 20160620
  44. OLOPATADINE HCL [Concomitant]
     Active Substance: OLOPATADINE HYDROCHLORIDE
     Indication: SEASONAL ALLERGY
     Dosage: 3 DROPS
     Route: 047
     Dates: start: 20160222
  45. BENZALKONIUM CHLORIDE. [Concomitant]
     Active Substance: BENZALKONIUM CHLORIDE
     Indication: SURGERY
     Dosage: 60 MILLILITER
     Route: 061
     Dates: start: 20160620, end: 20160620
  46. PROPOFOL. [Concomitant]
     Active Substance: PROPOFOL
     Indication: SURGERY
     Dosage: 60 MILLIGRAM
     Route: 041
     Dates: start: 20160620, end: 20160620
  47. PROPOFOL. [Concomitant]
     Active Substance: PROPOFOL
     Indication: NECK MASS
  48. FENTANYL. [Concomitant]
     Active Substance: FENTANYL
     Indication: NECK MASS
  49. ACETAMINOPHEN. [Concomitant]
     Active Substance: ACETAMINOPHEN
     Indication: INFLUENZA
     Dosage: 200 MILLIGRAM
     Route: 048
     Dates: start: 20160128, end: 20160201
  50. GALLIUM CITRATE [Concomitant]
     Active Substance: GALLIUM CITRATE GA-67
     Indication: IMAGING PROCEDURE
     Route: 041
     Dates: start: 20160507, end: 20160507
  51. GALLIUM CITRATE [Concomitant]
     Active Substance: GALLIUM CITRATE GA-67
     Indication: NECK MASS
  52. GLYCERIN. [Concomitant]
     Active Substance: GLYCERIN
     Indication: NECK MASS
     Dosage: 60 MILLIGRAM
     Route: 054
     Dates: start: 20160509, end: 20160509
  53. SUGAMMADEX SODIUM [Concomitant]
     Active Substance: SUGAMMADEX SODIUM
     Indication: SURGERY
     Dosage: 160 MILLIGRAM
     Route: 041
     Dates: start: 20160620, end: 20160620
  54. TRANEXAMIC ACID. [Concomitant]
     Active Substance: TRANEXAMIC ACID
     Indication: SURGERY
     Dosage: 250 MILLIGRAM
     Route: 041
     Dates: start: 20160620, end: 20160620
  55. TRANEXAMIC ACID. [Concomitant]
     Active Substance: TRANEXAMIC ACID
     Indication: NECK MASS

REACTIONS (1)
  - Lymph node tuberculosis [Recovered/Resolved]

NARRATIVE: CASE EVENT DATE: 201603
